FAERS Safety Report 8242652-4 (Version None)
Quarter: 2012Q1

REPORT INFORMATION
  Report Type: 
  Country: None (occurrence: None)
  Receive Date: 20120329
  Receipt Date: 20120326
  Transmission Date: 20120608
  Serious: Yes (Other)
  Sender: FDA-Public Use
  Company Number: PHHY2012NO026245

PATIENT
  Sex: Female

DRUGS (1)
  1. ZOLEDRONOC ACID [Suspect]
     Dosage: UNK UKN, UNK
     Route: 042

REACTIONS (5)
  - QUALITY OF LIFE DECREASED [None]
  - OEDEMA PERIPHERAL [None]
  - MYALGIA [None]
  - HEADACHE [None]
  - MALAISE [None]
